FAERS Safety Report 8173711-2 (Version None)
Quarter: 2012Q1

REPORT INFORMATION
  Report Type: 
  Country: None (occurrence: None)
  Receive Date: 20120229
  Receipt Date: 20120216
  Transmission Date: 20120608
  Serious: Yes (Death, Hospitalization)
  Sender: FDA-Public Use
  Company Number: NL-ACTELION-A-CH2012-61234

PATIENT
  Sex: Female
  Weight: 74 kg

DRUGS (10)
  1. TRACLEER [Suspect]
     Dosage: 62.5 MG, BID
     Route: 048
     Dates: start: 20090202, end: 20090301
  2. SPIRIVA [Concomitant]
  3. FLUTICASONE PROPIONATE/SALMETEROL [Concomitant]
  4. TRACLEER [Suspect]
     Indication: PULMONARY ARTERIAL HYPERTENSION
     Dosage: 125 MG, BID
     Route: 048
     Dates: start: 20090302, end: 20120211
  5. LANOXIN [Concomitant]
  6. BUMETANIDE [Concomitant]
  7. SPIRONOLACTONE [Concomitant]
  8. DILANORM [Concomitant]
  9. REVATIO [Concomitant]
  10. ACENOCOUMAROL [Concomitant]

REACTIONS (4)
  - CARDIAC FAILURE CHRONIC [None]
  - CARDIOPULMONARY FAILURE [None]
  - DISEASE PROGRESSION [None]
  - PULMONARY ARTERIAL HYPERTENSION [None]
